FAERS Safety Report 9188614 (Version 1)
Quarter: 2013Q1

REPORT INFORMATION
  Report Type: Spontaneous
  Country: US (occurrence: US)
  Receive Date: 20130325
  Receipt Date: 20130325
  Transmission Date: 20140127
  Serious: Yes (Other)
  Sender: FDA-Public Use
  Company Number: US-PFIZER INC-2013096293

PATIENT
  Age: 66 Year
  Sex: Female
  Weight: 60.77 kg

DRUGS (1)
  1. LYRICA [Suspect]
     Indication: NEURALGIA
     Dosage: UNK

REACTIONS (3)
  - Spinal column stenosis [Unknown]
  - Nerve injury [Unknown]
  - Drug ineffective [Unknown]
